FAERS Safety Report 16623488 (Version 1)
Quarter: 2019Q3

REPORT INFORMATION
  Report Type: Spontaneous
  Country: NL (occurrence: NL)
  Receive Date: 20190724
  Receipt Date: 20190724
  Transmission Date: 20191004
  Serious: Yes (Other)
  Sender: FDA-Public Use
  Company Number: NL-EMD SERONO-9105466

PATIENT
  Sex: Female

DRUGS (5)
  1. OVITRELLE [Suspect]
     Active Substance: CHORIOGONADOTROPIN ALFA
     Indication: IN VITRO FERTILISATION
     Dates: start: 2018
  2. DECAPEPTYL                         /00486501/ [Suspect]
     Active Substance: GONADORELIN
     Indication: IN VITRO FERTILISATION
     Dosage: PILL
     Dates: start: 20181219, end: 20181222
  3. GONAL-F [Suspect]
     Active Substance: FOLLITROPIN
     Dosage: 50 (UNSPECIFIED UNIT)
     Dates: start: 2018
  4. GONAL-F [Suspect]
     Active Substance: FOLLITROPIN
     Dosage: 37.5 (UNSPECIFIED UNIT)
     Dates: start: 2018
  5. GONAL-F [Suspect]
     Active Substance: FOLLITROPIN
     Indication: IN VITRO FERTILISATION
     Dosage: 75 (UNSPECIFIED UNIT)
     Dates: start: 2018

REACTIONS (1)
  - Abortion spontaneous [Recovered/Resolved]

NARRATIVE: CASE EVENT DATE: 201902
